FAERS Safety Report 7600052-1 (Version None)
Quarter: 2011Q2

REPORT INFORMATION
  Report Type: 
  Country: None (occurrence: None)
  Receive Date: 20110629
  Receipt Date: 20110610
  Transmission Date: 20111010
  Serious: Yes (Hospitalization)
  Sender: FDA-Public Use
  Company Number: QBSAER-00002

PATIENT
  Sex: Female

DRUGS (3)
  1. ELAVIL [Suspect]
  2. OPIOID PAINKILLERS [Concomitant]
  3. PREVAGEN (APOAEQUORIN) [Suspect]
     Dosage: ONE (1) CAPSULE, QD, ORAL
     Route: 048

REACTIONS (4)
  - CONVULSION [None]
  - SPINAL CORD DISORDER [None]
  - FALL [None]
  - INAPPROPRIATE SCHEDULE OF DRUG ADMINISTRATION [None]
